FAERS Safety Report 26059327 (Version 2)
Quarter: 2025Q4

REPORT INFORMATION
  Report Type: Spontaneous
  Country: IR (occurrence: IR)
  Receive Date: 20251118
  Receipt Date: 20251125
  Transmission Date: 20260117
  Serious: Yes (Death)
  Sender: SANOFI AVENTIS
  Company Number: IR-SA-2025SA343855

PATIENT
  Age: 10 Year
  Sex: Female

DRUGS (1)
  1. MYOZYME [Suspect]
     Active Substance: ALGLUCOSIDASE ALFA
     Indication: Glycogen storage disease type II
     Dosage: 20 MG/KG, BIW
     Dates: start: 2015, end: 202510

REACTIONS (1)
  - Respiratory tract infection [Fatal]
